FAERS Safety Report 12960240 (Version 1)
Quarter: 2016Q4

REPORT INFORMATION
  Report Type: Spontaneous
  Country: US (occurrence: US)
  Receive Date: 20161121
  Receipt Date: 20161121
  Transmission Date: 20170207
  Serious: Yes (Life-Threatening, Hospitalization, Other)
  Sender: FDA-Public Use
  Company Number: US-PRESTIGE BRANDS -1059824

PATIENT
  Age: 6 Year
  Sex: Female

DRUGS (4)
  1. PEDIACARE CHILDRENS PLUS MULTISYMPTOM COLD [Suspect]
     Active Substance: ACETAMINOPHEN\CHLORPHENIRAMINE MALEATE\DEXTROMETHORPHAN HYDROBROMIDE
     Indication: PYREXIA
     Route: 048
     Dates: start: 20141018, end: 20141019
  2. CHILDRENS TYLENOL [Suspect]
     Active Substance: ACETAMINOPHEN
     Route: 048
     Dates: start: 20141103, end: 20141103
  3. CHILDRENS MOTRIN [Suspect]
     Active Substance: IBUPROFEN
     Route: 048
     Dates: start: 20141102, end: 20141103
  4. EQUATE IBUPROFEN CHILDRENS [Suspect]
     Active Substance: IBUPROFEN
     Route: 048
     Dates: start: 20141101, end: 20141102

REACTIONS (44)
  - Stevens-Johnson syndrome [Recovered/Resolved with Sequelae]
  - Madarosis [Recovering/Resolving]
  - Corneal thinning [Recovered/Resolved with Sequelae]
  - Scar [Recovered/Resolved with Sequelae]
  - Oral mucosal blistering [Recovered/Resolved]
  - Erythema [Recovered/Resolved]
  - Skin necrosis [Recovered/Resolved with Sequelae]
  - Trichiasis [Recovered/Resolved with Sequelae]
  - Eye pain [Recovered/Resolved]
  - Staphylococcal bacteraemia [Recovered/Resolved with Sequelae]
  - Haemoglobin decreased [Recovered/Resolved]
  - Rash maculo-papular [Recovered/Resolved]
  - Lethargy [Recovered/Resolved]
  - Retinitis [Recovered/Resolved]
  - Pyrexia [Recovered/Resolved]
  - Dysuria [Recovered/Resolved]
  - Hand-foot-and-mouth disease [Recovered/Resolved]
  - Pneumonia staphylococcal [Recovered/Resolved with Sequelae]
  - Persistent corneal epithelial defect [Recovered/Resolved with Sequelae]
  - Asthenia [Recovered/Resolved]
  - Papule [Recovered/Resolved]
  - Respiratory failure [Recovered/Resolved with Sequelae]
  - Skin exfoliation [Recovered/Resolved]
  - Nasal congestion [Recovered/Resolved]
  - Acute haemorrhagic conjunctivitis [Recovered/Resolved]
  - Gait disturbance [Recovered/Resolved with Sequelae]
  - Saliva discolouration [Recovered/Resolved]
  - Malaise [Recovered/Resolved]
  - Nasal discharge discolouration [Recovered/Resolved]
  - Rash [Recovered/Resolved]
  - Stomatitis [Recovered/Resolved with Sequelae]
  - Face injury [Recovered/Resolved]
  - Dry eye [Recovered/Resolved]
  - Balance disorder [Recovered/Resolved]
  - Punctate keratitis [Recovered/Resolved]
  - Lung infiltration [Recovered/Resolved]
  - Conjunctival scar [Recovered/Resolved with Sequelae]
  - Arthropathy [Recovered/Resolved with Sequelae]
  - Labia enlarged [Recovered/Resolved]
  - Oropharyngeal pain [Recovered/Resolved]
  - Urinary tract infection [Recovered/Resolved]
  - Vomiting [Recovered/Resolved]
  - Hyperglycaemia [Recovered/Resolved]
  - Dysphagia [Recovered/Resolved]
